FAERS Safety Report 4912943-0 (Version None)
Quarter: 2006Q1

REPORT INFORMATION
  Report Type: 
  Country: None (occurrence: None)
  Receive Date: 20060215
  Receipt Date: 20060207
  Transmission Date: 20060701
  Serious: Yes (Hospitalization)
  Sender: FDA-Public Use
  Company Number: US-AVENTIS-200611436US

PATIENT
  Sex: Female
  Weight: 71.36 kg

DRUGS (5)
  1. LANTUS [Suspect]
     Indication: DIABETES MELLITUS INSULIN-DEPENDENT
     Dosage: DOSE UNIT: UNITS
     Dates: start: 20030101
  2. LANTUS [Suspect]
     Dosage: DOSE UNIT: UNITS
  3. NOVOLOG [Concomitant]
     Dosage: DOSE: SLIDING SCALE
  4. R TYPE INSULIN [Concomitant]
     Dosage: DOSE: SLIDING SCALE
  5. LISINOPRIL [Concomitant]
     Dosage: DOSE: SLIDING SCALE

REACTIONS (6)
  - ANAEMIA [None]
  - BLOOD GLUCOSE DECREASED [None]
  - BLOOD GLUCOSE INCREASED [None]
  - CARDIAC DISORDER [None]
  - DYSPNOEA [None]
  - KETOACIDOSIS [None]
